FAERS Safety Report 21401819 (Version 1)
Quarter: 2022Q3

REPORT INFORMATION
  Report Type: Spontaneous
  Country: US (occurrence: None)
  Receive Date: 20220930
  Receipt Date: 20220930
  Transmission Date: 20221027
  Serious: No
  Sender: FDA-Public Use
  Company Number: None

PATIENT
  Sex: Female

DRUGS (1)
  1. EXTAVIA [Suspect]
     Active Substance: INTERFERON BETA-1B
     Indication: Multiple sclerosis
     Dosage: 1ML EVERY OTHER DAY SUBCUTANEOUS?
     Route: 058
     Dates: start: 20220811

REACTIONS (4)
  - Drug delivery system malfunction [None]
  - Device leakage [None]
  - Device malfunction [None]
  - Drug dose omission by device [None]
